FAERS Safety Report 5232433-8 (Version None)
Quarter: 2007Q1

REPORT INFORMATION
  Report Type: 
  Country: None (occurrence: None)
  Receive Date: 20070205
  Receipt Date: 20070130
  Transmission Date: 20070707
  Serious: Yes (Other)
  Sender: FDA-Public Use
  Company Number: PHFR2006GB01819

PATIENT
  Age: 38 Year
  Sex: Male

DRUGS (10)
  1. NEORAL [Suspect]
     Indication: RENAL TRANSPLANT
     Dosage: 100 MG, BID
     Dates: start: 20020101
  2. CELLCEPT [Suspect]
     Indication: RENAL TRANSPLANT
     Dosage: 500 MG, BID, ORAL
     Route: 048
     Dates: start: 20020615, end: 20060315
  3. ATENOLOL [Suspect]
     Indication: HYPERTENSION
  4. DOXAZOSIN MESYLATE [Suspect]
     Indication: DRUG USE FOR UNKNOWN INDICATION
  5. ASPIRIN [Suspect]
     Indication: DRUG USE FOR UNKNOWN INDICATION
  6. ATORVASTATIN CALCIUM [Suspect]
     Indication: DRUG USE FOR UNKNOWN INDICATION
  7. ISONIAZID [Suspect]
     Indication: DRUG USE FOR UNKNOWN INDICATION
  8. PERINDOPRIL ERBUMINE [Suspect]
     Indication: HYPERTENSION
  9. PYRIDOXINE HCL [Suspect]
     Indication: DRUG USE FOR UNKNOWN INDICATION
  10. LAMIVUDINE [Suspect]
     Indication: HEPATITIS B

REACTIONS (1)
  - SPERMATOZOA PROGRESSIVE MOTILITY DECREASED [None]
